FAERS Safety Report 7541644-8 (Version None)
Quarter: 2011Q2

REPORT INFORMATION
  Report Type: 
  Country: None (occurrence: None)
  Receive Date: 20110613
  Receipt Date: 20110601
  Transmission Date: 20111010
  Serious: Yes (Hospitalization, Other)
  Sender: FDA-Public Use
  Company Number: JP-JNJFOC-20110310150

PATIENT
  Sex: Male

DRUGS (11)
  1. LEVOFLOXACIN [Suspect]
     Indication: NASOPHARYNGITIS
     Route: 048
     Dates: start: 20101202
  2. LOXONIN [Suspect]
     Indication: NASOPHARYNGITIS
     Route: 048
     Dates: start: 20101202, end: 20101203
  3. ACETAMINOPHEN [Suspect]
     Indication: NASOPHARYNGITIS
     Route: 048
     Dates: start: 20101202, end: 20101203
  4. DIOVAN [Concomitant]
     Indication: HYPERTENSION
     Route: 048
  5. MUCODYNE [Concomitant]
     Indication: NASOPHARYNGITIS
     Route: 048
     Dates: start: 20101202, end: 20101203
  6. LANTUS [Concomitant]
     Indication: DIABETES MELLITUS
     Route: 058
  7. KUBACRON [Concomitant]
     Indication: HYPERTENSION
     Route: 048
     Dates: end: 20101203
  8. DASEN [Concomitant]
     Indication: NASOPHARYNGITIS
     Route: 048
     Dates: start: 20101202, end: 20101203
  9. FLAVERIC [Concomitant]
     Indication: NASOPHARYNGITIS
     Route: 065
     Dates: start: 20101202, end: 20101203
  10. AMLODIPINE [Concomitant]
     Indication: HYPERTENSION
     Route: 048
  11. HUMALOG [Concomitant]
     Indication: DIABETES MELLITUS
     Route: 058

REACTIONS (3)
  - PNEUMONIA [None]
  - CARDIAC FAILURE [None]
  - RESPIRATORY FAILURE [None]
